FAERS Safety Report 20589387 (Version 1)
Quarter: 2022Q1

REPORT INFORMATION
  Report Type: Spontaneous
  Country: US (occurrence: None)
  Receive Date: 20220312
  Receipt Date: 20220312
  Transmission Date: 20220423
  Serious: Yes (Hospitalization)
  Sender: FDA-Public Use
  Company Number: None

PATIENT
  Age: 0 Year
  Sex: Male
  Weight: 10.8 kg

DRUGS (5)
  1. CYTARABINE [Suspect]
     Active Substance: CYTARABINE
     Dates: end: 20220220
  2. DAUNORUBICIN [Suspect]
     Active Substance: DAUNORUBICIN
     Dates: end: 20220214
  3. ZINECARD [Suspect]
     Active Substance: DEXRAZOXANE HYDROCHLORIDE
     Dates: end: 20220214
  4. MYLOTARG [Suspect]
     Active Substance: GEMTUZUMAB OZOGAMICIN
     Dates: end: 20220215
  5. METHOTREXATE [Suspect]
     Active Substance: METHOTREXATE
     Dates: end: 20220224

REACTIONS (8)
  - Dyskinesia [None]
  - Seizure [None]
  - Thrombocytopenia [None]
  - Irritability [None]
  - Fatigue [None]
  - Hemiplegia [None]
  - Subdural haematoma [None]
  - Subdural effusion [None]

NARRATIVE: CASE EVENT DATE: 20220301
